FAERS Safety Report 15230983 (Version 2)
Quarter: 2022Q3

REPORT INFORMATION
  Report Type: Spontaneous
  Country: US (occurrence: US)
  Receive Date: 20180802
  Receipt Date: 20220805
  Transmission Date: 20221026
  Serious: Yes (Other)
  Sender: FDA-Public Use
  Company Number: US-ACCORD-063385

PATIENT
  Age: 67 Year
  Sex: Female
  Weight: 83.46 kg

DRUGS (13)
  1. DOCETAXEL [Suspect]
     Active Substance: DOCETAXEL
     Indication: Breast cancer
     Dosage: NO OF CYCLE: 04
     Route: 042
     Dates: start: 20150916, end: 20151120
  2. CYTOXAN [Suspect]
     Active Substance: CYCLOPHOSPHAMIDE
     Indication: Breast cancer
     Dosage: NO OF CYCLE: 04??ADMINISTER IN 250 CC NS, OVER 30-60 MIN
     Route: 042
     Dates: start: 20150916, end: 20151120
  3. DECADRON [Concomitant]
     Active Substance: DEXAMETHASONE
     Dosage: ADMINISTER IN 100 CC NS, OVER 20 MIN
     Route: 042
     Dates: start: 20150916
  4. BENADRYL [Concomitant]
     Active Substance: DIPHENHYDRAMINE HYDROCHLORIDE
     Dosage: ADMINISTER IN 50 CC NS, OVER 20 MIN
     Route: 042
     Dates: start: 20150916
  5. ATIVAN [Concomitant]
     Active Substance: LORAZEPAM
     Dosage: ADMINISTER IN 100 CC NS, OVER 20 MIN
     Route: 042
     Dates: start: 20150916
  6. KYTRIL [Concomitant]
     Active Substance: GRANISETRON HYDROCHLORIDE
     Dosage: ADMINISTER IN 50 CC NS, OVER 20 MIN
     Route: 042
     Dates: start: 20150916
  7. NAPROXEN [Concomitant]
     Active Substance: NAPROXEN
     Dosage: STRENGTH: 500 MG ??1 TABLET AS NEEDED ORALLY EVERY 12 HRS
     Route: 048
  8. TRAMADOL HCL [Concomitant]
     Active Substance: TRAMADOL HYDROCHLORIDE
     Dosage: STRENGTH: 50 MG ??1 TABLET ORALLY EVERY 6 HRS
     Route: 048
  9. BENZONATATE [Concomitant]
     Active Substance: BENZONATATE
     Dosage: STRENGTH: 200 MG ??1 CAPSULE AS NEEDED ORALLY THREE TIMES A DAY
  10. ATORVASTATIN CALCIUM [Concomitant]
     Active Substance: ATORVASTATIN CALCIUM
     Dosage: STRENGTH: 10 MG ??1 TABLET ORALLY ONCE A DAY
     Route: 048
  11. TAMOXIFEN CITRATE [Concomitant]
     Active Substance: TAMOXIFEN CITRATE
     Dosage: STRENGTH: 10 MG??1 TABLET ORALLY TWICE A DAY
     Route: 048
  12. ACETAMINOPHEN\OXYCODONE HYDROCHLORIDE [Concomitant]
     Active Substance: ACETAMINOPHEN\OXYCODONE HYDROCHLORIDE
     Dosage: STRENGTH: 10-325 MG??1 TABLET AS NEEDED ORALLY EVERY 6 HRS
     Route: 048
  13. KETOROLAC TROMETHAMINE [Concomitant]
     Active Substance: KETOROLAC TROMETHAMINE
     Dosage: STRENGTH: 10 MG ??1 TABLET WITH FOOD OR MILK AS NEEDED ORALLY EVERY 6 HRS
     Route: 048
     Dates: start: 20161103

REACTIONS (1)
  - Alopecia [Not Recovered/Not Resolved]

NARRATIVE: CASE EVENT DATE: 20150920
